FAERS Safety Report 5397704-3 (Version None)
Quarter: 2007Q3

REPORT INFORMATION
  Report Type: 
  Country: None (occurrence: None)
  Receive Date: 20070726
  Receipt Date: 20070412
  Transmission Date: 20080115
  Serious: Yes (Hospitalization)
  Sender: FDA-Public Use
  Company Number: TW-AVENTIS-200713268GDDC

PATIENT
  Age: 23 Year
  Sex: Male

DRUGS (6)
  1. METRONIDAZOLE HCL [Suspect]
  2. METRONIDAZOLE HCL [Suspect]
     Indication: DUODENAL ULCER
  3. CLARITHROMYCIN [Suspect]
  4. CLARITHROMYCIN [Suspect]
     Indication: DUODENAL ULCER
  5. OMEPRAZOLE [Suspect]
  6. OMEPRAZOLE [Suspect]
     Indication: DUODENAL ULCER

REACTIONS (1)
  - HICCUPS [None]
